FAERS Safety Report 11191789 (Version 3)
Quarter: 2015Q3

REPORT INFORMATION
  Report Type: Report from Study
  Country: JP (occurrence: JP)
  Receive Date: 20150616
  Receipt Date: 20150805
  Transmission Date: 20151125
  Serious: Yes (Death, Hospitalization)
  Sender: FDA-Public Use
  Company Number: JP-EISAI MEDICAL RESEARCH-EC-2015-007641

PATIENT
  Age: 83 Year
  Sex: Female
  Weight: 59 kg

DRUGS (12)
  1. LOXOPROFEN [Concomitant]
     Active Substance: LOXOPROFEN
  2. LENVIMA [Suspect]
     Active Substance: LENVATINIB
     Indication: PAPILLARY THYROID CANCER
     Route: 048
     Dates: start: 20150525, end: 20150604
  3. DIOVAN [Concomitant]
     Active Substance: VALSARTAN
  4. ATORVASTATIN [Concomitant]
     Active Substance: ATORVASTATIN
  5. TAXOL [Concomitant]
     Active Substance: PACLITAXEL
     Dates: start: 20150507, end: 20150513
  6. MAGLAX [Suspect]
     Active Substance: MAGNESIUM OXIDE
     Indication: PRODUCT USED FOR UNKNOWN INDICATION
  7. TAKEPRON [Concomitant]
     Active Substance: LANSOPRAZOLE
  8. ADALAT [Concomitant]
     Active Substance: NIFEDIPINE
  9. LENVIMA [Suspect]
     Active Substance: LENVATINIB
     Route: 048
     Dates: start: 20150605, end: 20150608
  10. PASTARON [Concomitant]
     Active Substance: UREA
  11. VOGLIBOSE [Concomitant]
     Active Substance: VOGLIBOSE
  12. LEVOTHYROXINE NA [Concomitant]

REACTIONS (6)
  - Hepatic function abnormal [Not Recovered/Not Resolved]
  - Decreased appetite [Not Recovered/Not Resolved]
  - Nausea [Not Recovered/Not Resolved]
  - Renal disorder [Not Recovered/Not Resolved]
  - Malignant neoplasm progression [Fatal]
  - Vomiting [Not Recovered/Not Resolved]

NARRATIVE: CASE EVENT DATE: 20150528
